FAERS Safety Report 13654007 (Version 4)
Quarter: 2018Q2

REPORT INFORMATION
  Report Type: Report from Study
  Country: FR (occurrence: FR)
  Receive Date: 20170614
  Receipt Date: 20180413
  Transmission Date: 20180711
  Serious: Yes (Death, Hospitalization, Other)
  Sender: FDA-Public Use
  Company Number: FR-SEATTLE GENETICS-2017SGN00374

PATIENT
  Age: 66 Year
  Sex: Female
  Weight: 92 kg

DRUGS (3)
  1. BRENTUXIMAB VEDOTIN-MPI [Suspect]
     Active Substance: BRENTUXIMAB VEDOTIN
     Dosage: 150 MG, UNK
     Route: 042
     Dates: start: 20170103
  2. BRENTUXIMAB VEDOTIN-MPI [Suspect]
     Active Substance: BRENTUXIMAB VEDOTIN
     Indication: HODGKIN^S DISEASE
     Dosage: 165 MG, UNK
     Route: 042
     Dates: start: 20161019, end: 20170228
  3. BENDAMUSTINE [Concomitant]
     Active Substance: BENDAMUSTINE
     Indication: HODGKIN^S DISEASE
     Dosage: UNK
     Route: 065
     Dates: start: 20161019

REACTIONS (14)
  - Hodgkin^s disease [Unknown]
  - Respiratory disorder [Unknown]
  - General physical health deterioration [Not Recovered/Not Resolved]
  - Ascites [Unknown]
  - Hydrocephalus [Not Recovered/Not Resolved]
  - Off label use [Unknown]
  - Confusional state [Unknown]
  - Vomiting [Unknown]
  - Encephalitis [Unknown]
  - Fatigue [Not Recovered/Not Resolved]
  - Malignant peritoneal neoplasm [Fatal]
  - Acute kidney injury [Not Recovered/Not Resolved]
  - Neurological decompensation [Unknown]
  - Nausea [Unknown]

NARRATIVE: CASE EVENT DATE: 201701
